FAERS Safety Report 5592681-4 (Version None)
Quarter: 2007Q4

REPORT INFORMATION
  Report Type: 
  Country: None (occurrence: None)
  Receive Date: 20071218
  Receipt Date: 20061106
  Transmission Date: 20080405
  Serious: Yes (Hospitalization, Other)
  Sender: FDA-Public Use
  Company Number: 2006140082

PATIENT
  Age: 65 Year
  Sex: Female
  Weight: 82.6 kg

DRUGS (1)
  1. BEXTRA [Suspect]
     Indication: RHEUMATOID ARTHRITIS
     Dosage: 20 MG (10 MG, 2 IN 1 D, ORAL)
     Route: 048
     Dates: start: 20020120

REACTIONS (1)
  - MYOCARDIAL INFARCTION [None]
